FAERS Safety Report 25999094 (Version 1)
Quarter: 2025Q4

REPORT INFORMATION
  Report Type: Spontaneous
  Country: EU (occurrence: EU)
  Receive Date: 20251105
  Receipt Date: 20251105
  Transmission Date: 20260118
  Serious: Yes (Other)
  Sender: BOEHRINGER INGELHEIM
  Company Number: EU-BoehringerIngelheim-2025-BI-104415

PATIENT
  Sex: Male
  Weight: 70 kg

DRUGS (4)
  1. NINTEDANIB [Suspect]
     Active Substance: NINTEDANIB
     Indication: Product used for unknown indication
  2. beclometasone dipropionate/formoterol fumarate dihydrate/glycopyrroniu [Concomitant]
     Indication: Product used for unknown indication
     Dosage: INHALER
  3. GOLIMUMAB [Concomitant]
     Active Substance: GOLIMUMAB
     Indication: Product used for unknown indication
  4. OXYGEN [Concomitant]
     Active Substance: OXYGEN
     Indication: Product used for unknown indication
     Dosage: LONG-TERM OXYGEN THERAPY

REACTIONS (9)
  - Deep vein thrombosis [Unknown]
  - Gastrointestinal disorder [Unknown]
  - Pulmonary function test decreased [Unknown]
  - Aortic aneurysm [Unknown]
  - Dyspnoea exertional [Unknown]
  - Peripheral arterial occlusive disease [Unknown]
  - Hypertension [Unknown]
  - Psoriatic arthropathy [Unknown]
  - Quality of life decreased [Unknown]
